FAERS Safety Report 18054629 (Version 1)
Quarter: 2020Q3

REPORT INFORMATION
  Report Type: Spontaneous
  Country: US (occurrence: US)
  Receive Date: 20200722
  Receipt Date: 20200722
  Transmission Date: 20201103
  Serious: No
  Sender: FDA-Public Use
  Company Number: US-SA-2020SA186651

PATIENT

DRUGS (13)
  1. FOLIC ACID. [Concomitant]
     Active Substance: FOLIC ACID
  2. DICYCLOMINE HCL [Concomitant]
     Active Substance: DICYCLOMINE HYDROCHLORIDE
  3. DIMENHYDRINATE. [Concomitant]
     Active Substance: DIMENHYDRINATE
  4. NOVOLOG [Concomitant]
     Active Substance: INSULIN ASPART
  5. KEVZARA [Suspect]
     Active Substance: SARILUMAB
     Dosage: 200 MG 1.14 ML, QOW
     Route: 058
     Dates: start: 202006
  6. ONDANSETRON [Concomitant]
     Active Substance: ONDANSETRON
  7. METHOTREXATE. [Concomitant]
     Active Substance: METHOTREXATE
  8. GABAPENTIN. [Concomitant]
     Active Substance: GABAPENTIN
  9. TRESIBA [Concomitant]
     Active Substance: INSULIN DEGLUDEC
  10. TRAMADOL HCL [Concomitant]
     Active Substance: TRAMADOL HYDROCHLORIDE
  11. JARDIANCE [Concomitant]
     Active Substance: EMPAGLIFLOZIN
  12. LIDOCAIN HCL [Concomitant]
  13. OMEPRAZOLE. [Concomitant]
     Active Substance: OMEPRAZOLE

REACTIONS (1)
  - Therapeutic response decreased [Unknown]

NARRATIVE: CASE EVENT DATE: 2020
